FAERS Safety Report 22345883 (Version 1)
Quarter: 2023Q2

REPORT INFORMATION
  Report Type: Spontaneous
  Country: None (occurrence: US)
  Receive Date: 20230519
  Receipt Date: 20230519
  Transmission Date: 20230722
  Serious: Yes (Other)
  Sender: FDA-Public Use
  Company Number: US-EzriCare, LLC-2141766

PATIENT
  Sex: Female

DRUGS (1)
  1. ARTIFICIAL TEARS LUBRICANT EYE DROPS (CARBOXYMETHYLCELLULOSE SODIUM) [Suspect]
     Active Substance: CARBOXYMETHYLCELLULOSE SODIUM
     Route: 047

REACTIONS (1)
  - Injury corneal [Unknown]

NARRATIVE: CASE EVENT DATE: 20230202
